FAERS Safety Report 9931485 (Version 2)
Quarter: 2015Q4

REPORT INFORMATION
  Report Type: Report from Study
  Country: US (occurrence: US)
  Receive Date: 20140228
  Receipt Date: 20151118
  Transmission Date: 20160305
  Serious: Yes (Hospitalization, Other)
  Sender: FDA-Public Use
  Company Number: US-ROCHE-1333673

PATIENT
  Age: 77 Year
  Sex: Male
  Weight: 76.27 kg

DRUGS (23)
  1. TROPICAMIDE. [Concomitant]
     Active Substance: TROPICAMIDE
     Route: 065
  2. LISINOPRIL. [Concomitant]
     Active Substance: LISINOPRIL
  3. ZADITOR [Concomitant]
     Active Substance: KETOTIFEN FUMARATE
     Dosage: OU
     Route: 047
     Dates: start: 20080825, end: 20101101
  4. ZYRTEC [Concomitant]
     Active Substance: CETIRIZINE HYDROCHLORIDE
  5. OCUFLOX (UNITED STATES) [Concomitant]
     Dosage: X 4 DAYS
     Route: 047
     Dates: start: 20101206, end: 20111003
  6. SOMA [Concomitant]
     Active Substance: CARISOPRODOL
  7. VICODIN [Concomitant]
     Active Substance: ACETAMINOPHEN\HYDROCODONE BITARTRATE
  8. VITAMIN B COMPLEX [Concomitant]
     Active Substance: CYANOCOBALAMIN\DEXPANTHENOL\NIACINAMIDE\PYRIDOXINE HYDROCHLORIDE\RIBOFLAVIN 5^-PHOSPHATE SODIUM\THIAMINE HYDROCHLORIDE\VITAMIN B COMPLEX
  9. ZYMAR [Concomitant]
     Active Substance: GATIFLOXACIN
     Dosage: X 4 DAYS
     Route: 047
     Dates: start: 20091019, end: 20091221
  10. AVASTIN [Suspect]
     Active Substance: BEVACIZUMAB
     Indication: PRODUCT USED FOR UNKNOWN INDICATION
     Route: 050
     Dates: start: 20080318
  11. CLONIDINE HYDROCHLORIDE. [Concomitant]
     Active Substance: CLONIDINE HYDROCHLORIDE
  12. ASPIRIN. [Concomitant]
     Active Substance: ASPIRIN
  13. BENADRYL ALLERGY (UNITED STATES) [Concomitant]
     Route: 048
  14. LUTEIN [Concomitant]
     Active Substance: LUTEIN
  15. ZYMAR [Concomitant]
     Active Substance: GATIFLOXACIN
     Dosage: X 4 DAYS
     Route: 047
     Dates: start: 20080318, end: 20080818
  16. AVASTIN [Suspect]
     Active Substance: BEVACIZUMAB
     Route: 050
     Dates: start: 20110110
  17. SYSTANE (UNITED STATES) [Concomitant]
     Dosage: 0.4-0.3% OU
     Route: 047
  18. OCUFLOX (UNITED STATES) [Concomitant]
     Dosage: X2 WEEKS
     Route: 047
     Dates: start: 20091116, end: 20100201
  19. LUCENTIS [Suspect]
     Active Substance: RANIBIZUMAB
     Indication: NEOVASCULAR AGE-RELATED MACULAR DEGENERATION
     Route: 050
     Dates: start: 20110214
  20. LUCENTIS [Suspect]
     Active Substance: RANIBIZUMAB
     Indication: NEOVASCULAR AGE-RELATED MACULAR DEGENERATION
     Route: 050
  21. ZADITOR [Concomitant]
     Active Substance: KETOTIFEN FUMARATE
     Dosage: 0.025%; OU
     Route: 047
  22. PHENYLEPHRINE [Concomitant]
     Active Substance: PHENYLEPHRINE\PHENYLEPHRINE HYDROCHLORIDE
     Route: 065
  23. PROPARACAINE [Concomitant]
     Active Substance: PROPARACAINE

REACTIONS (14)
  - Visual acuity reduced [Unknown]
  - Metamorphopsia [Unknown]
  - Hypertension [Unknown]
  - Gastrooesophageal reflux disease [Unknown]
  - Macular oedema [Recovered/Resolved]
  - Arthritis [Unknown]
  - Macular fibrosis [Unknown]
  - Blepharitis [Unknown]
  - Toxicity to various agents [Unknown]
  - Intraocular lens implant [Unknown]
  - Dry eye [Unknown]
  - Retinal degeneration [Unknown]
  - Anaemia [Unknown]
  - Cataract nuclear [Unknown]

NARRATIVE: CASE EVENT DATE: 201010
